FAERS Safety Report 4408245-1 (Version None)
Quarter: 2004Q3

REPORT INFORMATION
  Report Type: 
  Country: None (occurrence: None)
  Receive Date: 20040722
  Receipt Date: 20040708
  Transmission Date: 20050211
  Serious: No
  Sender: FDA-Public Use
  Company Number: 238044

PATIENT
  Age: 77 Year
  Sex: Female

DRUGS (1)
  1. ACTRAPHANE 30 PENFILL(INSULIN HUMAN) SUSPENSION FOR INJECTION, 100IU/M [Suspect]
     Indication: DIABETES MELLITUS

REACTIONS (2)
  - DRUG INEFFECTIVE [None]
  - HYPERGLYCAEMIA [None]
